FAERS Safety Report 9556145 (Version 1)
Quarter: 2013Q3

REPORT INFORMATION
  Report Type: Spontaneous
  Country: IN (occurrence: IN)
  Receive Date: 20130926
  Receipt Date: 20130926
  Transmission Date: 20140515
  Serious: Yes (Disabling)
  Sender: FDA-Public Use
  Company Number: IN-SANOFI-AVENTIS-2013SA094155

PATIENT
  Age: 73 Year
  Sex: Female
  Weight: 40 kg

DRUGS (5)
  1. STILNOCT [Suspect]
     Indication: INSOMNIA
     Dosage: DOSE AND FREQ: 6.25 MG AND 12.5MG/ 1 TAB
     Route: 048
     Dates: start: 20130712, end: 20130825
  2. THYROXIN [Concomitant]
     Indication: HYPOTHYROIDISM
     Route: 048
     Dates: start: 201307
  3. CLOPIDOGREL [Concomitant]
     Route: 048
     Dates: start: 201307
  4. ROSUVASTATIN [Concomitant]
     Indication: DYSLIPIDAEMIA
     Route: 048
     Dates: start: 201307
  5. METOPROLOL [Concomitant]
     Indication: HYPERTENSION
     Dosage: DOSE: 2.5 MG PLUS 25 GM
     Route: 048

REACTIONS (7)
  - Thinking abnormal [Recovered/Resolved]
  - Urinary incontinence [Recovered/Resolved]
  - Extrapyramidal disorder [Recovered/Resolved]
  - Hallucination [Recovered/Resolved]
  - Illusion [Recovered/Resolved]
  - Restlessness [Recovered/Resolved]
  - Irritability [Recovered/Resolved]
